FAERS Safety Report 8624744-0 (Version None)
Quarter: 2012Q3

REPORT INFORMATION
  Report Type: 
  Country: None (occurrence: None)
  Receive Date: 20120827
  Receipt Date: 20120806
  Transmission Date: 20120928
  Serious: No
  Sender: FDA-Public Use
  Company Number: US-009507513-1208USA001024

PATIENT

DRUGS (9)
  1. MIRALAX [Suspect]
     Indication: CONSTIPATION
     Dosage: UNK, QD
     Route: 048
     Dates: start: 20120716
  2. MOBIC [Concomitant]
     Indication: MONARTHRITIS
     Dosage: UNK, UNKNOWN
  3. MIRALAX [Suspect]
     Dosage: 17 G, UNK
     Route: 048
     Dates: start: 20120705, end: 20120713
  4. ZOLOFT [Concomitant]
     Indication: ANXIETY
     Dosage: UNK, UNKNOWN
  5. OMEGA-3-ACID ETHYL ESTERS [Concomitant]
     Indication: BLOOD CHOLESTEROL
     Dosage: UNK, UNKNOWN
  6. SIMVASTATIN [Concomitant]
     Indication: BLOOD CHOLESTEROL
     Dosage: UNK, UNKNOWN
  7. CALCIUM (UNSPECIFIED) (+) VITAMIN D (UNSPECIFIED) [Concomitant]
     Indication: PRODUCT USED FOR UNKNOWN INDICATION
     Dosage: UNK, UNKNOWN
  8. CHOLECALCIFEROL [Concomitant]
     Indication: PRODUCT USED FOR UNKNOWN INDICATION
     Dosage: UNK, UNKNOWN
  9. ASPIRIN [Concomitant]
     Indication: BLOOD CHOLESTEROL
     Dosage: 81 MG, UNKNOWN

REACTIONS (1)
  - DYSPEPSIA [None]
